FAERS Safety Report 4589694-8 (Version None)
Quarter: 2005Q1

REPORT INFORMATION
  Report Type: 
  Country: None (occurrence: None)
  Receive Date: 20050217
  Receipt Date: 20050204
  Transmission Date: 20050727
  Serious: Yes (Hospitalization)
  Sender: FDA-Public Use
  Company Number: 2005CG00328

PATIENT
  Age: 67 Year
  Sex: Female

DRUGS (2)
  1. OMEPRAZOLE [Suspect]
     Dates: start: 20050123, end: 20050130
  2. VOLTAREN [Suspect]

REACTIONS (3)
  - DRUG HYPERSENSITIVITY [None]
  - HYPOTENSION [None]
  - THROMBOCYTOPENIC PURPURA [None]
